FAERS Safety Report 18435870 (Version 1)
Quarter: 2020Q4

REPORT INFORMATION
  Report Type: Spontaneous
  Country: US (occurrence: US)
  Receive Date: 20201028
  Receipt Date: 20201028
  Transmission Date: 20210114
  Serious: Yes (Hospitalization)
  Sender: FDA-Public Use
  Company Number: None

PATIENT
  Age: 61 Year
  Sex: Female

DRUGS (1)
  1. AFINITOR [Suspect]
     Active Substance: EVEROLIMUS
     Indication: CARCINOID TUMOUR OF THE SMALL BOWEL
     Route: 048

REACTIONS (2)
  - Abdominal pain upper [None]
  - Gastrointestinal obstruction [None]

NARRATIVE: CASE EVENT DATE: 20201027
